FAERS Safety Report 14760509 (Version 3)
Quarter: 2019Q2

REPORT INFORMATION
  Report Type: Report from Study
  Country: CA (occurrence: CA)
  Receive Date: 20180414
  Receipt Date: 20190418
  Transmission Date: 20190711
  Serious: Yes (Other)
  Sender: FDA-Public Use
  Company Number: CA-ROCHE-2107935

PATIENT
  Age: 32 Year
  Sex: Male

DRUGS (1)
  1. OCREVUS [Suspect]
     Active Substance: OCRELIZUMAB
     Indication: RELAPSING-REMITTING MULTIPLE SCLEROSIS
     Dosage: INITIAL DOSAGE?300 MG DAY 0,14, THEN 600 MG EVERY 6 MONTH
     Route: 042
     Dates: start: 20180406

REACTIONS (3)
  - Nasopharyngitis [Unknown]
  - Substance abuse [Unknown]
  - Depression [Unknown]

NARRATIVE: CASE EVENT DATE: 20180412
